FAERS Safety Report 8837777 (Version 1)
Quarter: 2012Q4

REPORT INFORMATION
  Report Type: 
  Country: US (occurrence: US)
  Receive Date: 20121012
  Receipt Date: 20121012
  Transmission Date: 20130627
  Serious: No
  Sender: FDA-Public Use
  Company Number: US-GLAXOSMITHKLINE-A0982164A

PATIENT
  Age: 82 Year
  Sex: Male

DRUGS (5)
  1. JALYN [Suspect]
     Dosage: 1CAP Per day
     Route: 048
     Dates: start: 20120611
  2. XARELTO [Concomitant]
  3. LISINOPRIL [Concomitant]
  4. LIPITOR [Concomitant]
  5. BABY ASPIRIN [Concomitant]

REACTIONS (1)
  - Dyspepsia [Unknown]
